FAERS Safety Report 4701531-7 (Version None)
Quarter: 2005Q2

REPORT INFORMATION
  Report Type: 
  Country: None (occurrence: None)
  Receive Date: 20050627
  Receipt Date: 20050614
  Transmission Date: 20051028
  Serious: No
  Sender: FDA-Public Use
  Company Number: 11613

PATIENT

DRUGS (1)
  1. METHOTREXATE [Suspect]
     Indication: ACUTE LYMPHOCYTIC LEUKAEMIA

REACTIONS (3)
  - CRANIAL NEUROPATHY [None]
  - DYSARTHRIA [None]
  - HEMIPARESIS [None]
